FAERS Safety Report 5046503-0 (Version None)
Quarter: 2006Q3

REPORT INFORMATION
  Report Type: 
  Country: None (occurrence: None)
  Receive Date: 20060707
  Receipt Date: 20060707
  Transmission Date: 20061208
  Serious: Yes (Life-Threatening, Hospitalization)
  Sender: FDA-Public Use
  Company Number: None

PATIENT
  Age: 61 Year
  Sex: Male

DRUGS (5)
  1. METOPROLOL TARTRATE [Suspect]
     Indication: ANGINA PECTORIS
     Dosage: 100MG   BID   PO
     Route: 048
     Dates: start: 20060221, end: 20060411
  2. METOPROLOL TARTRATE [Suspect]
     Indication: CORONARY ARTERY DISEASE
     Dosage: 100MG   BID   PO
     Route: 048
     Dates: start: 20060221, end: 20060411
  3. METOPROLOL TARTRATE [Suspect]
     Indication: HYPERTENSION
     Dosage: 100MG   BID   PO
     Route: 048
     Dates: start: 20060221, end: 20060411
  4. ZOCOR [Concomitant]
  5. ASPIRIN [Concomitant]

REACTIONS (2)
  - HEART RATE DECREASED [None]
  - SYNCOPE [None]
